APPROVED DRUG PRODUCT: PROPECIA
Active Ingredient: FINASTERIDE
Strength: 1MG
Dosage Form/Route: TABLET;ORAL
Application: N020788 | Product #001 | TE Code: AB
Applicant: ORGANON LLC A SUB OF ORGANON AND CO
Approved: Dec 19, 1997 | RLD: Yes | RS: Yes | Type: RX